FAERS Safety Report 16123489 (Version 1)
Quarter: 2019Q1

REPORT INFORMATION
  Report Type: Spontaneous
  Country: FR (occurrence: FR)
  Receive Date: 20190327
  Receipt Date: 20190327
  Transmission Date: 20190418
  Serious: Yes (Hospitalization, Other)
  Sender: FDA-Public Use
  Company Number: FR-SA-2019SA077702

PATIENT
  Age: 48 Year
  Sex: Female

DRUGS (1)
  1. ZOLPIDEM TARTRATE. [Suspect]
     Active Substance: ZOLPIDEM TARTRATE
     Dosage: 80 MG, QD
     Route: 048

REACTIONS (4)
  - Overdose [Unknown]
  - Intentional product use issue [Unknown]
  - Drug dependence [Unknown]
  - Drug detoxification [Recovering/Resolving]
